FAERS Safety Report 8283494-3 (Version None)
Quarter: 2012Q2

REPORT INFORMATION
  Report Type: 
  Country: None (occurrence: None)
  Receive Date: 20120413
  Receipt Date: 20120410
  Transmission Date: 20120825
  Serious: Yes (Death, Other)
  Sender: FDA-Public Use
  Company Number: PHHY2012JP030931

PATIENT
  Sex: Male

DRUGS (2)
  1. VANCOMYCIN [Suspect]
     Indication: PNEUMONIA STAPHYLOCOCCAL
     Dosage: 0.5 G, BID
     Dates: start: 20110926, end: 20110930
  2. VANCOMYCIN [Suspect]
     Dosage: 0.5 G, BID
     Dates: start: 20111010, end: 20111018

REACTIONS (5)
  - RENAL IMPAIRMENT [None]
  - PYREXIA [None]
  - CIRCULATORY COLLAPSE [None]
  - DRUG LEVEL INCREASED [None]
  - CONCOMITANT DISEASE PROGRESSION [None]
